FAERS Safety Report 16439759 (Version 1)
Quarter: 2019Q2

REPORT INFORMATION
  Report Type: Spontaneous
  Country: JP (occurrence: JP)
  Receive Date: 20190617
  Receipt Date: 20190617
  Transmission Date: 20190711
  Serious: Yes (Other)
  Sender: FDA-Public Use
  Company Number: JP-PFIZER INC-2019247795

PATIENT

DRUGS (8)
  1. DELAMANID [Concomitant]
     Active Substance: DELAMANID
     Dosage: UNK
  2. IMIPENEM [Concomitant]
     Active Substance: IMIPENEM
     Dosage: UNK
  3. CILASTATIN [Concomitant]
     Active Substance: CILASTATIN
     Dosage: UNK
  4. BEDAQUILINE [Concomitant]
     Active Substance: BEDAQUILINE
     Dosage: UNK
  5. CLAVULANATE POTASSIUM [Concomitant]
     Active Substance: CLAVULANATE POTASSIUM
     Dosage: UNK
  6. LINEZOLID. [Suspect]
     Active Substance: LINEZOLID
     Indication: TUBERCULOSIS
     Dosage: UNK
  7. KANAMYCIN [Concomitant]
     Active Substance: KANAMYCIN\KANAMYCIN A SULFATE
     Dosage: UNK
  8. LEVOFLOXACIN. [Concomitant]
     Active Substance: LEVOFLOXACIN
     Dosage: UNK

REACTIONS (4)
  - Coma [Unknown]
  - Meningitis tuberculous [Unknown]
  - Off label use [Unknown]
  - Product use in unapproved indication [Unknown]
